FAERS Safety Report 9975068 (Version 1)
Quarter: 2014Q1

REPORT INFORMATION
  Report Type: Report from Study
  Country: US (occurrence: US)
  Receive Date: 20140306
  Receipt Date: 20140306
  Transmission Date: 20141002
  Serious: No
  Sender: FDA-Public Use
  Company Number: US-ABBVIE-13P-163-1160765-00

PATIENT
  Age: 40 Year
  Sex: Female
  Weight: 49.94 kg

DRUGS (5)
  1. HUMIRA [Suspect]
     Indication: RHEUMATOID ARTHRITIS
     Dates: start: 2004, end: 2004
  2. HUMIRA [Suspect]
     Dates: start: 200603
  3. PREDNISOLONE [Concomitant]
     Indication: RHEUMATOID ARTHRITIS
     Dates: end: 2010
  4. PREDNISOLONE [Concomitant]
     Dates: start: 20131014
  5. PLAQUENIL [Concomitant]
     Indication: UNEVALUABLE EVENT
     Dates: start: 201308

REACTIONS (4)
  - Pain [Not Recovered/Not Resolved]
  - Pain [Unknown]
  - Pain [Unknown]
  - Rheumatoid arthritis [Recovered/Resolved]
